FAERS Safety Report 17569401 (Version 2)
Quarter: 2020Q1

REPORT INFORMATION
  Report Type: Spontaneous
  Country: US (occurrence: US)
  Receive Date: 20200322
  Receipt Date: 20200326
  Transmission Date: 20200409
  Serious: No
  Sender: FDA-Public Use
  Company Number: ALC2020US002424

PATIENT
  Sex: Male

DRUGS (2)
  1. ICAPS AREDS 2 [Suspect]
     Active Substance: MINERALS\VITAMINS
     Indication: PRODUCT USED FOR UNKNOWN INDICATION
     Dosage: UNK
     Route: 065
  2. ICAPS AREDS 2 [Suspect]
     Active Substance: MINERALS\VITAMINS
     Dosage: UNK
     Route: 065

REACTIONS (6)
  - Product use complaint [Recovered/Resolved]
  - Suffocation feeling [Recovered/Resolved]
  - Product quality issue [Recovered/Resolved]
  - Foreign body in respiratory tract [Recovered/Resolved]
  - Product shape issue [Recovered/Resolved]
  - Dysphagia [Recovered/Resolved]
